FAERS Safety Report 6970360-6 (Version None)
Quarter: 2010Q3

REPORT INFORMATION
  Report Type: 
  Country: None (occurrence: None)
  Receive Date: 20100908
  Receipt Date: 20100901
  Transmission Date: 20110219
  Serious: Yes (Other)
  Sender: FDA-Public Use
  Company Number: DE-JNJCH-2010019837

PATIENT
  Sex: Female

DRUGS (1)
  1. REGAINE 2% [Suspect]
     Indication: PRODUCT USED FOR UNKNOWN INDICATION
     Dosage: TEXT:UNKNOWN
     Route: 061

REACTIONS (4)
  - ARRHYTHMIA [None]
  - CONDITION AGGRAVATED [None]
  - OEDEMA [None]
  - TACHYCARDIA [None]
